FAERS Safety Report 12139685 (Version 2)
Quarter: 2016Q1

REPORT INFORMATION
  Report Type: Report from Study
  Country: US (occurrence: US)
  Receive Date: 20160303
  Receipt Date: 20160309
  Transmission Date: 20160526
  Serious: Yes (Death)
  Sender: FDA-Public Use
  Company Number: US-ROCHE-1720190

PATIENT
  Sex: Female

DRUGS (1)
  1. ESBRIET [Suspect]
     Active Substance: PIRFENIDONE
     Indication: IDIOPATHIC PULMONARY FIBROSIS
     Dosage: DAY 1 TO 7 ONCE CAPSULE, THREE TIMES A DAY, DAY 8 TO 14 TWO CAPSULES THREE TIMES A DAY ?DAY 15 ON WA
     Route: 048

REACTIONS (2)
  - Death [Fatal]
  - Drug dose omission [Unknown]
